FAERS Safety Report 17525037 (Version 1)
Quarter: 2020Q1

REPORT INFORMATION
  Report Type: Report from Study
  Country: US (occurrence: US)
  Receive Date: 20200311
  Receipt Date: 20200311
  Transmission Date: 20200409
  Serious: Yes (Other)
  Sender: FDA-Public Use
  Company Number: NVSC2020US065136

PATIENT
  Sex: Male

DRUGS (1)
  1. GILENYA [Suspect]
     Active Substance: FINGOLIMOD HYDROCHLORIDE
     Indication: MULTIPLE SCLEROSIS
     Dosage: 0.5 MG, QD
     Route: 048
     Dates: start: 20200128

REACTIONS (6)
  - Headache [Unknown]
  - Abdominal distension [Unknown]
  - Abdominal discomfort [Unknown]
  - Weight increased [Unknown]
  - Optic neuritis [Unknown]
  - Cough [Unknown]
